FAERS Safety Report 6905579-3 (Version None)
Quarter: 2010Q3

REPORT INFORMATION
  Report Type: 
  Country: None (occurrence: None)
  Receive Date: 20100804
  Receipt Date: 20100722
  Transmission Date: 20110219
  Serious: Yes (Death)
  Sender: FDA-Public Use
  Company Number: IT-GENZYME-THYR-1000336

PATIENT
  Sex: Male

DRUGS (2)
  1. THYROGEN [Suspect]
     Indication: DIAGNOSTIC PROCEDURE
     Dosage: UNK
  2. RADIOACTIVE IODINE SOLUTION [Suspect]
     Indication: WHOLE BODY SCAN
     Dosage: UNK
     Dates: start: 20070119, end: 20070119

REACTIONS (1)
  - MALIGNANT NEOPLASM PROGRESSION [None]
